FAERS Safety Report 5370364-3 (Version None)
Quarter: 2007Q2

REPORT INFORMATION
  Report Type: 
  Country: None (occurrence: None)
  Receive Date: 20070626
  Receipt Date: 20070615
  Transmission Date: 20071010
  Serious: Yes (Life-Threatening, Other)
  Sender: FDA-Public Use
  Company Number: FI-BRISTOL-MYERS SQUIBB COMPANY-13817606

PATIENT
  Age: 61 Year
  Sex: Male

DRUGS (5)
  1. WARFARIN SODIUM [Suspect]
  2. RAMIPRIL [Suspect]
  3. DIGOXIN [Suspect]
  4. SPIRONOLACTONE [Suspect]
  5. METOPROLOL SUCCINATE [Suspect]

REACTIONS (2)
  - HYPERKALAEMIA [None]
  - RENAL FAILURE ACUTE [None]
